FAERS Safety Report 16129975 (Version 1)
Quarter: 2019Q1

REPORT INFORMATION
  Report Type: Spontaneous
  Country: US (occurrence: US)
  Receive Date: 20190328
  Receipt Date: 20190328
  Transmission Date: 20190418
  Serious: Yes (Hospitalization, Other)
  Sender: FDA-Public Use
  Company Number: US-MYLANLABS-2019M1027809

PATIENT
  Age: 16 Year
  Sex: Female
  Weight: 65.76 kg

DRUGS (1)
  1. XULANE [Suspect]
     Active Substance: ETHINYL ESTRADIOL\NORELGESTROMIN
     Indication: MENSTRUATION IRREGULAR
     Route: 062

REACTIONS (5)
  - Off label use [Unknown]
  - Chest pain [Not Recovered/Not Resolved]
  - Thrombosis [Recovering/Resolving]
  - Haemoptysis [Unknown]
  - Pain [Unknown]

NARRATIVE: CASE EVENT DATE: 20190109
